FAERS Safety Report 12184275 (Version 2)
Quarter: 2016Q2

REPORT INFORMATION
  Report Type: Spontaneous
  Country: US (occurrence: US)
  Receive Date: 20160316
  Receipt Date: 20160406
  Transmission Date: 20160815
  Serious: Yes (Other)
  Sender: FDA-Public Use
  Company Number: US-JNJFOC-20160216160

PATIENT
  Sex: Female
  Weight: 71.67 kg

DRUGS (9)
  1. SPORANOX [Suspect]
     Active Substance: ITRACONAZOLE
     Indication: SKIN INFECTION
     Dosage: PULSE THERAPY UPTO 400 MG DAILY, AS 200MG DAILY DURING THE WEEK AND 400MG DAILY ON WEEKENDS
     Route: 048
     Dates: start: 20160203
  2. BACTRIM [Concomitant]
     Active Substance: SULFAMETHOXAZOLE\TRIMETHOPRIM
     Indication: ESCHERICHIA INFECTION
     Route: 065
     Dates: start: 2009
  3. SPORANOX [Suspect]
     Active Substance: ITRACONAZOLE
     Indication: SKIN INFECTION
     Route: 048
     Dates: start: 2011
  4. SPORANOX [Suspect]
     Active Substance: ITRACONAZOLE
     Indication: SKIN INFECTION
     Route: 048
     Dates: start: 2010, end: 2010
  5. SPORANOX [Suspect]
     Active Substance: ITRACONAZOLE
     Indication: SKIN INFECTION
     Route: 048
     Dates: start: 2015, end: 2015
  6. SPORANOX [Suspect]
     Active Substance: ITRACONAZOLE
     Indication: SKIN INFECTION
     Dosage: TOOK MORE THAN PRESCRIBED
     Route: 048
     Dates: start: 201401, end: 2014
  7. SPORANOX [Suspect]
     Active Substance: ITRACONAZOLE
     Indication: SKIN INFECTION
     Dosage: PULSE THERAPY UP TO 600 MG DAILY
     Route: 048
     Dates: start: 2010, end: 2010
  8. SPORANOX [Suspect]
     Active Substance: ITRACONAZOLE
     Indication: SKIN INFECTION
     Route: 048
     Dates: start: 2010, end: 2010
  9. DOXYCYCLINE. [Concomitant]
     Active Substance: DOXYCYCLINE
     Indication: STAPHYLOCOCCAL INFECTION
     Route: 065
     Dates: start: 2009

REACTIONS (8)
  - Fatigue [Recovered/Resolved]
  - Dyspnoea [Unknown]
  - Self-medication [Unknown]
  - Hypertension [Unknown]
  - Drug dose omission [Unknown]
  - Skin infection [Not Recovered/Not Resolved]
  - Treatment noncompliance [Unknown]
  - Pain [Unknown]

NARRATIVE: CASE EVENT DATE: 2010
